FAERS Safety Report 24829832 (Version 1)
Quarter: 2025Q1

REPORT INFORMATION
  Report Type: Spontaneous
  Country: US (occurrence: US)
  Receive Date: 20250110
  Receipt Date: 20250110
  Transmission Date: 20250409
  Serious: Yes (Hospitalization, Other)
  Sender: AMGEN
  Company Number: US-AMGEN-USASP2025001081

PATIENT
  Age: 78 Year
  Sex: Female

DRUGS (8)
  1. PREDNISONE [Suspect]
     Active Substance: PREDNISONE
     Indication: Colitis
     Route: 065
  2. INFLIXIMAB [Suspect]
     Active Substance: INFLIXIMAB
     Indication: Pneumonitis
     Route: 065
  3. ANASTROZOLE [Concomitant]
     Active Substance: ANASTROZOLE
     Indication: Breast cancer
  4. NIVOLUMAB [Concomitant]
     Active Substance: NIVOLUMAB
     Indication: Mesothelioma
  5. IPILIMUMAB [Concomitant]
     Active Substance: IPILIMUMAB
     Indication: Mesothelioma
  6. ATROPINE\DIPHENOXYLATE [Concomitant]
     Active Substance: ATROPINE\DIPHENOXYLATE
     Indication: Colitis
  7. ATROPINE\DIPHENOXYLATE [Concomitant]
     Active Substance: ATROPINE\DIPHENOXYLATE
     Indication: Diarrhoea
  8. VEDOLIZUMAB [Concomitant]
     Active Substance: VEDOLIZUMAB

REACTIONS (11)
  - Pneumonitis [Unknown]
  - Breast cancer recurrent [Unknown]
  - Immune-mediated enterocolitis [Recovered/Resolved]
  - Immune-mediated adverse reaction [Unknown]
  - Mucosal inflammation [Unknown]
  - Skin abrasion [Unknown]
  - Skin ulcer [Unknown]
  - Treatment failure [Unknown]
  - Therapy partial responder [Unknown]
  - Papule [Unknown]
  - Off label use [Unknown]
